FAERS Safety Report 13329926 (Version 1)
Quarter: 2017Q1

REPORT INFORMATION
  Report Type: Spontaneous
  Country: US (occurrence: US)
  Receive Date: 20170313
  Receipt Date: 20170313
  Transmission Date: 20170428
  Serious: Yes (Hospitalization)
  Sender: FDA-Public Use
  Company Number: US-TEVA-748062USA

PATIENT
  Age: 12 Year
  Sex: Female

DRUGS (2)
  1. IMMUNOGLOBULIN (IVIG) [Suspect]
     Active Substance: HUMAN IMMUNOGLOBULIN G
     Indication: MYELITIS
     Dosage: 2 G/KG (2 DOSES)
     Route: 042
  2. METHYLPREDNISOLONE. [Suspect]
     Active Substance: METHYLPREDNISOLONE
     Indication: MYELITIS
     Route: 065

REACTIONS (1)
  - Myelitis [Recovering/Resolving]
